FAERS Safety Report 6984208-7 (Version None)
Quarter: 2010Q3

REPORT INFORMATION
  Report Type: 
  Country: None (occurrence: None)
  Receive Date: 20100915
  Receipt Date: 20100908
  Transmission Date: 20110219
  Serious: Yes (Hospitalization)
  Sender: FDA-Public Use
  Company Number: US-BIOGENIDEC-2010BI027707

PATIENT
  Sex: Female

DRUGS (3)
  1. AVONEX [Suspect]
     Indication: MULTIPLE SCLEROSIS
     Route: 030
     Dates: start: 20010831, end: 20070115
  2. AVONEX [Suspect]
     Route: 030
     Dates: start: 20080918
  3. AVONEX [Suspect]
     Route: 030
     Dates: start: 20100709

REACTIONS (7)
  - CHOLECYSTECTOMY [None]
  - CROHN'S DISEASE [None]
  - FALL [None]
  - HERNIA [None]
  - INTESTINAL OBSTRUCTION [None]
  - MEDICAL DEVICE COMPLICATION [None]
  - PERITONITIS [None]
